FAERS Safety Report 4947032-2 (Version None)
Quarter: 2006Q1

REPORT INFORMATION
  Report Type: 
  Country: None (occurrence: None)
  Receive Date: 20060317
  Receipt Date: 20060306
  Transmission Date: 20060701
  Serious: Yes (Hospitalization, Other)
  Sender: FDA-Public Use
  Company Number: 2006SE01334

PATIENT
  Age: 36 Year
  Sex: Female
  Weight: 85 kg

DRUGS (4)
  1. CRESTOR [Suspect]
     Indication: DYSLIPIDAEMIA
     Route: 048
     Dates: start: 20060301, end: 20060303
  2. FLURBIPROPHEN [Concomitant]
     Indication: OSTEOARTHRITIS
     Route: 048
  3. ACEMETACIN [Concomitant]
     Indication: OSTEOARTHRITIS
     Route: 048
  4. TIZANIDINE HCL [Concomitant]
     Indication: OSTEOARTHRITIS
     Route: 048

REACTIONS (3)
  - CHEST DISCOMFORT [None]
  - EYE OEDEMA [None]
  - FACE OEDEMA [None]
